FAERS Safety Report 9468349 (Version 3)
Quarter: 2013Q3

REPORT INFORMATION
  Report Type: Spontaneous
  Country: US (occurrence: US)
  Receive Date: 20130821
  Receipt Date: 20130909
  Transmission Date: 20140515
  Serious: No
  Sender: FDA-Public Use
  Company Number: US-PFIZER INC-2013240532

PATIENT
  Sex: Female
  Weight: 48 kg

DRUGS (2)
  1. LYRICA [Suspect]
     Indication: POOR PERIPHERAL CIRCULATION
     Dosage: UNK
     Dates: start: 201307
  2. LYRICA [Suspect]
     Indication: BURNING SENSATION

REACTIONS (7)
  - Off label use [Unknown]
  - Dry mouth [Unknown]
  - Constipation [Unknown]
  - Dizziness [Unknown]
  - Migraine [Unknown]
  - Therapeutic response unexpected [Unknown]
  - Headache [Unknown]
